FAERS Safety Report 13390181 (Version 1)
Quarter: 2017Q1

REPORT INFORMATION
  Report Type: Spontaneous
  Country: US (occurrence: US)
  Receive Date: 20170331
  Receipt Date: 20170331
  Transmission Date: 20170429
  Serious: Yes (Hospitalization)
  Sender: FDA-Public Use
  Company Number: US-STRIDES ARCOLAB LIMITED-2016SP002418

PATIENT

DRUGS (1)
  1. IBUPROFEN. [Suspect]
     Active Substance: IBUPROFEN
     Indication: COSTOCHONDRITIS
     Dosage: UNK

REACTIONS (8)
  - Skin plaque [Recovered/Resolved]
  - Fixed drug eruption [Recovered/Resolved]
  - Dermatitis bullous [Recovered/Resolved]
  - Blister [Recovered/Resolved]
  - Epidermal necrosis [Recovered/Resolved]
  - Skin erosion [Recovered/Resolved]
  - Skin lesion [Recovered/Resolved]
  - Pain [Recovered/Resolved]
